FAERS Safety Report 14368012 (Version 1)
Quarter: 2018Q1

REPORT INFORMATION
  Report Type: Spontaneous
  Country: US (occurrence: US)
  Receive Date: 20180109
  Receipt Date: 20180109
  Transmission Date: 20180509
  Serious: Yes (Death, Hospitalization)
  Sender: FDA-Public Use
  Company Number: None

PATIENT
  Age: 72 Year
  Sex: Female
  Weight: 67.5 kg

DRUGS (1)
  1. AMIDARONE [Suspect]
     Active Substance: AMIODARONE
     Indication: DRUG THERAPY
     Dosage: ?          QUANTITY:1 TABLET(S);?
     Route: 048
     Dates: start: 20171122, end: 20171207

REACTIONS (8)
  - Rash [None]
  - Decreased appetite [None]
  - Pancreatic disorder [None]
  - Diarrhoea [None]
  - Nausea [None]
  - Lethargy [None]
  - Liver disorder [None]
  - Aplastic anaemia [None]

NARRATIVE: CASE EVENT DATE: 20171207
